FAERS Safety Report 11641939 (Version 2)
Quarter: 2015Q4

REPORT INFORMATION
  Report Type: Report from Study
  Country: KR (occurrence: KR)
  Receive Date: 20151019
  Receipt Date: 20151021
  Transmission Date: 20160304
  Serious: Yes (Other)
  Sender: FDA-Public Use
  Company Number: PHHY2015KR123135

PATIENT
  Age: 70 Year
  Sex: Female

DRUGS (24)
  1. TASIGNA [Suspect]
     Active Substance: NILOTINIB
     Dosage: 600 MG, QD
     Route: 048
     Dates: start: 20131016, end: 20131029
  2. CHLORPHENAMINE [Concomitant]
     Active Substance: CHLORPHENIRAMINE MALEATE
     Dosage: 4 MG, UNK
     Route: 042
     Dates: start: 20131030, end: 20131030
  3. DESONIDE. [Concomitant]
     Active Substance: DESONIDE
     Indication: PRURITUS
     Dosage: 120 ML, UNK
     Route: 061
     Dates: start: 20130912, end: 20130912
  4. MAGNESIUM OXIDE. [Concomitant]
     Active Substance: MAGNESIUM OXIDE
     Indication: CONSTIPATION
     Dosage: 3000 MG, UNK
     Route: 048
     Dates: start: 20131007, end: 20131007
  5. SODIUM BICARBONATE. [Concomitant]
     Active Substance: SODIUM BICARBONATE
     Indication: LEUKOCYTOSIS
  6. ALLOPURINOL. [Concomitant]
     Active Substance: ALLOPURINOL
     Indication: PNEUMONIA
     Dosage: 300 MG, UNK
     Route: 048
     Dates: start: 20131006, end: 20131006
  7. LEVOCETIRIZINE [Concomitant]
     Active Substance: LEVOCETIRIZINE
     Indication: PRURITUS
     Dosage: 5 MG, UNK
     Route: 048
     Dates: start: 20130912, end: 20130919
  8. MEGESTROL ACETATE. [Concomitant]
     Active Substance: MEGESTROL ACETATE
     Indication: DECREASED APPETITE
     Dosage: 1 DF (1 PACK)
     Route: 048
     Dates: start: 20130905, end: 20131105
  9. TASIGNA [Suspect]
     Active Substance: NILOTINIB
     Dosage: 300 MG, QD
     Route: 048
     Dates: start: 20131113, end: 20131210
  10. TASIGNA [Suspect]
     Active Substance: NILOTINIB
     Dosage: 600 MG, QD
     Route: 048
     Dates: start: 20131211, end: 20131212
  11. ALLOPURINOL. [Concomitant]
     Active Substance: ALLOPURINOL
     Indication: HYPERURICAEMIA
  12. NAPROXEN. [Concomitant]
     Active Substance: NAPROXEN
     Indication: PAIN MANAGEMENT
     Dosage: 1500 MG, UNK
     Route: 048
     Dates: start: 20130822, end: 20130827
  13. POLYSTYRENE SULFONATE CALCIUM [Concomitant]
     Active Substance: CALCIUM POLYSTYRENE SULFONATE
     Indication: PNEUMONIA
     Dosage: 15 G, UNK
     Route: 048
     Dates: start: 20131005, end: 20131007
  14. SODIUM BICARBONATE. [Concomitant]
     Active Substance: SODIUM BICARBONATE
     Indication: PNEUMONIA
     Dosage: 120 ML, UNK
     Route: 042
     Dates: start: 20131005, end: 20131008
  15. CEFAZOLIN SODIUM. [Concomitant]
     Active Substance: CEFAZOLIN SODIUM
     Indication: PNEUMONIA
     Dosage: 6000 MG, UNK
     Route: 042
     Dates: start: 20131007, end: 20131008
  16. METOCLOPRAMIDE HCL [Concomitant]
     Active Substance: METOCLOPRAMIDE HYDROCHLORIDE
     Indication: DECREASED APPETITE
     Dosage: 15 MG, UNK
     Route: 048
     Dates: start: 20130822, end: 20130827
  17. SODIUM CHLORIDE. [Concomitant]
     Active Substance: SODIUM CHLORIDE
     Indication: PNEUMONIA
     Dosage: 2000 ML, UNK
     Route: 042
     Dates: start: 20131005, end: 20131008
  18. POLYSTYRENE SULFONATE CALCIUM [Concomitant]
     Active Substance: CALCIUM POLYSTYRENE SULFONATE
     Indication: HYPERKALAEMIA
  19. CHLORPHENAMINE [Concomitant]
     Active Substance: CHLORPHENIRAMINE MALEATE
     Indication: ANAEMIA
     Dosage: 4 MG, UNK
     Route: 042
     Dates: start: 20130912, end: 20130912
  20. LASIX [Concomitant]
     Active Substance: FUROSEMIDE
     Indication: PNEUMONIA
     Dosage: 20 MG, UNK
     Route: 042
     Dates: start: 20131007, end: 20131008
  21. SODIUM CHLORIDE. [Concomitant]
     Active Substance: SODIUM CHLORIDE
     Indication: LEUKOCYTOSIS
  22. TASIGNA [Suspect]
     Active Substance: NILOTINIB
     Indication: CHRONIC MYELOID LEUKAEMIA
     Dosage: 600 MG, QD
     Route: 048
     Dates: start: 20130822, end: 20130905
  23. CEFTAZIDIME. [Concomitant]
     Active Substance: CEFTAZIDIME
     Indication: PNEUMONIA
     Dosage: 6000 MG, UNK
     Route: 042
     Dates: start: 20131007, end: 20131008
  24. CHLORPHENAMINE [Concomitant]
     Active Substance: CHLORPHENIRAMINE MALEATE
     Indication: TRANSFUSION
     Dosage: 4 MG, UNK
     Route: 042
     Dates: start: 20130917, end: 20130917

REACTIONS (1)
  - Azotaemia [Not Recovered/Not Resolved]

NARRATIVE: CASE EVENT DATE: 20131211
